FAERS Safety Report 25589102 (Version 1)
Quarter: 2025Q3

REPORT INFORMATION
  Report Type: Spontaneous
  Country: US (occurrence: US)
  Receive Date: 20250722
  Receipt Date: 20250722
  Transmission Date: 20251021
  Serious: Yes (Other)
  Sender: COOPERSURGICAL
  Company Number: US-COOPERSURGICAL, INC.-2025CPS005510

PATIENT
  Age: 21 Year
  Sex: Female
  Weight: 86.168 kg

DRUGS (1)
  1. PARAGARD T 380A [Suspect]
     Active Substance: COPPER
     Indication: Contraception
     Route: 015
     Dates: start: 20100101

REACTIONS (18)
  - Reproductive complication associated with device [Not Recovered/Not Resolved]
  - Uterine leiomyoma [Not Recovered/Not Resolved]
  - Device breakage [Recovered/Resolved]
  - Foreign body in urogenital tract [Recovered/Resolved]
  - Complication of device removal [Recovered/Resolved]
  - Pelvic inflammatory disease [Not Recovered/Not Resolved]
  - Emotional distress [Unknown]
  - Uterine scar [Recovered/Resolved]
  - Contusion [Recovered/Resolved]
  - Bladder injury [Not Recovered/Not Resolved]
  - Urinary incontinence [Unknown]
  - Pollakiuria [Unknown]
  - Sexual dysfunction [Not Recovered/Not Resolved]
  - Pain [Not Recovered/Not Resolved]
  - Muscle spasms [Not Recovered/Not Resolved]
  - Pelvic pain [Unknown]
  - Abnormal uterine bleeding [Unknown]
  - Menstrual disorder [Unknown]

NARRATIVE: CASE EVENT DATE: 20100101
